FAERS Safety Report 12706986 (Version 3)
Quarter: 2017Q3

REPORT INFORMATION
  Report Type: Report from Study
  Country: AU (occurrence: AU)
  Receive Date: 20160901
  Receipt Date: 20170822
  Transmission Date: 20171127
  Serious: Yes (Other)
  Sender: FDA-Public Use
  Company Number: PHHY2014AU159354

PATIENT
  Age: 37 Year
  Sex: Female

DRUGS (3)
  1. PSYLLIUM [Concomitant]
     Active Substance: PLANTAGO SEED
     Indication: CONSTIPATION
     Dosage: UNK
     Route: 065
     Dates: start: 20140724, end: 20150723
  2. VITAMIN D [Concomitant]
     Active Substance: CHOLECALCIFEROL
     Indication: PROPHYLAXIS
     Dosage: 2000 IU, UNK
     Route: 065
     Dates: start: 2014
  3. GILENYA [Suspect]
     Active Substance: FINGOLIMOD HYDROCHLORIDE
     Indication: MULTIPLE SCLEROSIS
     Dosage: UNK, QD
     Route: 048
     Dates: start: 20140301

REACTIONS (14)
  - Blindness unilateral [Recovering/Resolving]
  - Menorrhagia [Recovered/Resolved]
  - Multiple sclerosis relapse [Unknown]
  - Visual field defect [Recovering/Resolving]
  - Optic neuritis [Unknown]
  - Iron deficiency [Recovered/Resolved]
  - Fatigue [Recovered/Resolved]
  - Alanine aminotransferase increased [Recovered/Resolved]
  - Eye pain [Recovering/Resolving]
  - Dyspepsia [Not Recovered/Not Resolved]
  - Groin pain [Unknown]
  - Neck pain [Not Recovered/Not Resolved]
  - Headache [Recovering/Resolving]
  - Laryngitis [Recovered/Resolved]

NARRATIVE: CASE EVENT DATE: 20140613
